FAERS Safety Report 4286371-8 (Version None)
Quarter: 2004Q1

REPORT INFORMATION
  Report Type: 
  Country: None (occurrence: None)
  Receive Date: 20040121
  Receipt Date: 20030506
  Transmission Date: 20041129
  Serious: Yes (Hospitalization)
  Sender: FDA-Public Use
  Company Number: A03200300966

PATIENT
  Age: 86 Year
  Sex: Female
  Weight: 58.9676 kg

DRUGS (7)
  1. PLAVIX [Suspect]
     Indication: CEREBROVASCULAR ACCIDENT PROPHYLAXIS
     Dosage: 75 MG QD-ORAL
     Route: 048
     Dates: start: 20010101
  2. ATENOLOL [Concomitant]
  3. CHLORDIAZEPOXIDE HCL [Concomitant]
  4. TIRAMTERENE/HYDROCHLOROTHIAZIDE [Concomitant]
  5. MECLIZINE [Concomitant]
  6. ACETYLSALICYLIC ACID SRT [Concomitant]
  7. VITAMIN B6 [Concomitant]

REACTIONS (3)
  - CEREBROVASCULAR ACCIDENT [None]
  - CONTUSION [None]
  - DRUG INEFFECTIVE [None]
